FAERS Safety Report 8984198 (Version 2)
Quarter: 2013Q1

REPORT INFORMATION
  Report Type: Spontaneous
  Country: JP (occurrence: JP)
  Receive Date: 20121226
  Receipt Date: 20130122
  Transmission Date: 20140127
  Serious: No
  Sender: FDA-Public Use
  Company Number: JP-PFIZER INC-2012325172

PATIENT
  Age: 75 Year
  Sex: Female
  Weight: 60.6 kg

DRUGS (2)
  1. SUTENT [Suspect]
     Indication: RENAL CANCER METASTATIC
     Dosage: 25 MG, 4-WEEK ON AND 2-WEEK OFF
     Route: 048
     Dates: start: 20101102, end: 20111204
  2. SUTENT [Suspect]
     Dosage: 25 MG, 1-DAY ON AND 3-DAY OFF
     Route: 048
     Dates: start: 20120203, end: 20121002

REACTIONS (2)
  - Platelet count decreased [Recovering/Resolving]
  - White blood cell count decreased [Recovering/Resolving]
